FAERS Safety Report 10435834 (Version 1)
Quarter: 2014Q3

REPORT INFORMATION
  Report Type: Spontaneous
  Country: US (occurrence: None)
  Receive Date: 20140905
  Receipt Date: 20140905
  Transmission Date: 20150326
  Serious: No
  Sender: FDA-Public Use
  Company Number: None

PATIENT
  Age: 30 Year
  Sex: Male
  Weight: 69 kg

DRUGS (4)
  1. LOPERAMIDE [Suspect]
     Active Substance: LOPERAMIDE
     Indication: PROPHYLAXIS
     Route: 048
     Dates: start: 20140901, end: 20140902
  2. LOPERAMIDE [Suspect]
     Active Substance: LOPERAMIDE
     Indication: RHINORRHOEA
     Route: 048
     Dates: start: 20140901, end: 20140902
  3. LOPERAMIDE [Suspect]
     Active Substance: LOPERAMIDE
     Indication: OFF LABEL USE
     Route: 048
     Dates: start: 20140901, end: 20140902
  4. AZITHROMYCIN [Suspect]
     Active Substance: AZITHROMYCIN ANHYDROUS
     Indication: HYPERSENSITIVITY
     Dosage: 2 ORAL
     Route: 048
     Dates: start: 20140902, end: 20140902

REACTIONS (5)
  - Constipation [None]
  - Hypersensitivity [None]
  - Drug dispensing error [None]
  - Off label use [None]
  - Wrong drug administered [None]

NARRATIVE: CASE EVENT DATE: 20140902
